FAERS Safety Report 13139682 (Version 1)
Quarter: 2017Q1

REPORT INFORMATION
  Report Type: Spontaneous
  Country: US (occurrence: US)
  Receive Date: 20170123
  Receipt Date: 20170123
  Transmission Date: 20170428
  Serious: Yes (Other)
  Sender: FDA-Public Use
  Company Number: US-PFIZER INC-2017028219

PATIENT
  Sex: Female

DRUGS (1)
  1. SUTENT [Suspect]
     Active Substance: SUNITINIB MALATE
     Indication: RENAL CANCER
     Dosage: 50 MG, CYCLIC (TWO WEEKS ON ONE WEEK OFF.)
     Dates: start: 201412

REACTIONS (7)
  - Diarrhoea [Unknown]
  - Weight increased [Unknown]
  - Thyroid disorder [Unknown]
  - Blood pressure increased [Unknown]
  - Chills [Unknown]
  - Eye swelling [Unknown]
  - Fatigue [Unknown]
